FAERS Safety Report 20361752 (Version 1)
Quarter: 2022Q1

REPORT INFORMATION
  Report Type: Spontaneous
  Country: CN (occurrence: CN)
  Receive Date: 20220121
  Receipt Date: 20220121
  Transmission Date: 20220423
  Serious: Yes (Life-Threatening, Hospitalization, Other)
  Sender: FDA-Public Use
  Company Number: CN-NOVARTISPH-NVSC2022CN011873

PATIENT
  Age: 61 Year
  Sex: Male

DRUGS (2)
  1. INCLISIRAN [Suspect]
     Active Substance: INCLISIRAN
     Indication: Lipids increased
     Dosage: 300 MG,(1 BRANCH EVERY TIME)
     Route: 058
     Dates: start: 20210701
  2. INCLISIRAN [Suspect]
     Active Substance: INCLISIRAN
     Dosage: 300 MG, (1 BRANCH EVERY TIME)
     Route: 058
     Dates: start: 20211008

REACTIONS (1)
  - Ischaemic stroke [Unknown]

NARRATIVE: CASE EVENT DATE: 20220117
